FAERS Safety Report 4971552-8 (Version None)
Quarter: 2006Q2

REPORT INFORMATION
  Report Type: 
  Country: None (occurrence: None)
  Receive Date: 20060413
  Receipt Date: 20060322
  Transmission Date: 20061013
  Serious: No
  Sender: FDA-Public Use
  Company Number: PHHO2006CO04835

PATIENT
  Age: 42 Year
  Sex: Female
  Weight: 67 kg

DRUGS (2)
  1. GLEEVEC [Suspect]
     Indication: CHRONIC MYELOID LEUKAEMIA
     Dosage: 400 MG/D
     Route: 048
     Dates: start: 20050916
  2. IBUPROFEN [Concomitant]

REACTIONS (12)
  - ALOPECIA [None]
  - CUSHINGOID [None]
  - DRY SKIN [None]
  - EYELID OEDEMA [None]
  - FACE OEDEMA [None]
  - INCREASED APPETITE [None]
  - OCULAR HYPERAEMIA [None]
  - POLYDIPSIA [None]
  - POLYURIA [None]
  - RASH [None]
  - SKIN STRIAE [None]
  - WEIGHT INCREASED [None]
